FAERS Safety Report 12550277 (Version 1)
Quarter: 2016Q3

REPORT INFORMATION
  Report Type: Report from Study
  Country: IN (occurrence: IN)
  Receive Date: 20160712
  Receipt Date: 20160712
  Transmission Date: 20161109
  Serious: Yes (Death)
  Sender: FDA-Public Use
  Company Number: PHHY2016IN095150

PATIENT
  Age: 75 Year
  Sex: Male

DRUGS (1)
  1. SEQUADRA INHALER [Suspect]
     Active Substance: GLYCOPYRRONIUM\INDACATEROL
     Indication: CHRONIC OBSTRUCTIVE PULMONARY DISEASE
     Dosage: 1 DF (110/50 UG), UNK
     Route: 055
     Dates: start: 20160115

REACTIONS (1)
  - Death [Fatal]

NARRATIVE: CASE EVENT DATE: 20160303
